FAERS Safety Report 5056176-9 (Version None)
Quarter: 2006Q2

REPORT INFORMATION
  Report Type: 
  Country: None (occurrence: None)
  Receive Date: 20060616
  Receipt Date: 20050804
  Transmission Date: 20061013
  Serious: Yes (Other)
  Sender: FDA-Public Use
  Company Number: PHEH2005US08661

PATIENT
  Age: 51 Year
  Sex: Male

DRUGS (2)
  1. EXELON [Suspect]
     Indication: DEMENTIA
     Dosage: 1.5 MG,BID,ORAL
     Route: 048
     Dates: start: 20050801
  2. ATENOLOL [Concomitant]

REACTIONS (6)
  - BLOOD PRESSURE INCREASED [None]
  - DIZZINESS [None]
  - ERYTHEMA [None]
  - FATIGUE [None]
  - HEADACHE [None]
  - MALAISE [None]
